FAERS Safety Report 6803911-2 (Version None)
Quarter: 2010Q2

REPORT INFORMATION
  Report Type: 
  Country: None (occurrence: None)
  Receive Date: 20100628
  Receipt Date: 20060502
  Transmission Date: 20101027
  Serious: No
  Sender: FDA-Public Use
  Company Number: US-PFIZER INC-2006060409

PATIENT
  Sex: Male
  Weight: 94.35 kg

DRUGS (7)
  1. SUTENT [Suspect]
     Indication: RENAL CANCER
     Route: 048
     Dates: start: 20060328, end: 20060501
  2. PREVACID [Interacting]
     Indication: DYSPEPSIA
     Route: 048
     Dates: start: 20060426, end: 20060501
  3. PREVACID [Interacting]
     Indication: GASTROOESOPHAGEAL REFLUX DISEASE
  4. NPH INSULIN [Concomitant]
     Indication: DIABETES MELLITUS
     Route: 058
  5. INSULIN [Concomitant]
     Indication: DIABETES MELLITUS
     Route: 058
  6. ATENOLOL [Concomitant]
     Route: 048
  7. TERAZOSIN HCL [Concomitant]
     Route: 048

REACTIONS (5)
  - DRUG INTERACTION [None]
  - DYSPEPSIA [None]
  - ERYTHEMA [None]
  - GASTROOESOPHAGEAL REFLUX DISEASE [None]
  - PRURITUS [None]
